FAERS Safety Report 9336282 (Version 2)
Quarter: 2013Q3

REPORT INFORMATION
  Report Type: Spontaneous
  Country: US (occurrence: US)
  Receive Date: 20130607
  Receipt Date: 20130709
  Transmission Date: 20140515
  Serious: Yes (Hospitalization, Disabling, Other)
  Sender: FDA-Public Use
  Company Number: US-009507513-1306USA000721

PATIENT
  Sex: Female

DRUGS (6)
  1. SINEMET [Suspect]
     Indication: PARKINSON^S DISEASE
     Dosage: UNK
     Route: 048
     Dates: start: 201111
  2. SINEMET [Suspect]
     Dosage: A QUARTER OF A SINEMET 25/100 TABLET FOUR TIMES A DAY AND A ONE WHOLE TABLET AT BEDTIME
     Route: 048
  3. COZAAR [Concomitant]
  4. HYDROCHLOROTHIAZIDE [Concomitant]
  5. PROPRANOLOL HYDROCHLORIDE [Concomitant]
  6. VESICARE [Concomitant]

REACTIONS (8)
  - Mobility decreased [Not Recovered/Not Resolved]
  - Abasia [Not Recovered/Not Resolved]
  - Paralysis [Not Recovered/Not Resolved]
  - Fall [Unknown]
  - Gait disturbance [Not Recovered/Not Resolved]
  - Wrong technique in drug usage process [Unknown]
  - Hallucination [Unknown]
  - Dysarthria [Unknown]
